FAERS Safety Report 20728778 (Version 1)
Quarter: 2022Q2

REPORT INFORMATION
  Report Type: Spontaneous
  Country: FR (occurrence: FR)
  Receive Date: 20220420
  Receipt Date: 20220420
  Transmission Date: 20220721
  Serious: Yes (Hospitalization)
  Sender: FDA-Public Use
  Company Number: None

PATIENT
  Age: 76 Year
  Sex: Male
  Weight: 81 kg

DRUGS (3)
  1. FLUOXETINE HYDROCHLORIDE [Interacting]
     Active Substance: FLUOXETINE HYDROCHLORIDE
     Indication: Mixed anxiety and depressive disorder
     Dosage: FLUOXETINE (CHLORHYDRATE DE), UNIT DOSE: 20 MG, FREQUENCY TIME 1 DAY, THERAPY START DATE : ASKU
     Route: 048
     Dates: end: 20220329
  2. WARFARIN SODIUM [Interacting]
     Active Substance: WARFARIN SODIUM
     Indication: Ischaemic stroke
     Dosage: SCORED TABLET, FREQUENCY TIME 1 DAY, STRENGTH: 2 MG, UNIT DOSE: 2 MG, THERAPY START DATE : ASKU
     Route: 048
     Dates: end: 20220326
  3. KARDEGIC [Interacting]
     Active Substance: ASPIRIN DL-LYSINE
     Indication: Ischaemic stroke
     Dosage: POWDER FOR ORAL SOLUTION IN SACHET-DOSE, UNIT DOSE: 1 DF, FREQUENCY TIME 1 DAY, THERAPY START DATE
     Route: 048
     Dates: end: 20220326

REACTIONS (2)
  - Drug interaction [Not Recovered/Not Resolved]
  - Haemorrhagic stroke [Not Recovered/Not Resolved]

NARRATIVE: CASE EVENT DATE: 20220326
